FAERS Safety Report 5255072-1 (Version None)
Quarter: 2007Q1

REPORT INFORMATION
  Report Type: 
  Country: None (occurrence: None)
  Receive Date: 20070305
  Receipt Date: 20070227
  Transmission Date: 20070707
  Serious: Yes (Death)
  Sender: FDA-Public Use
  Company Number: IT-BRISTOL-MYERS SQUIBB COMPANY-13693015

PATIENT

DRUGS (1)
  1. PACLITAXEL [Suspect]
     Indication: ANGIOSARCOMA

REACTIONS (1)
  - SKIN LESION [None]
